FAERS Safety Report 9531029 (Version 1)
Quarter: 2013Q3

REPORT INFORMATION
  Report Type: Spontaneous
  Country: US (occurrence: None)
  Receive Date: 20130916
  Receipt Date: 20130916
  Transmission Date: 20140515
  Serious: Yes (Hospitalization)
  Sender: FDA-Public Use
  Company Number: None

PATIENT
  Age: 32 Year
  Sex: Female
  Weight: 72.58 kg

DRUGS (6)
  1. PEGSYS PROCLICK [Suspect]
     Indication: CHRONIC HEPATITIS C
     Route: 058
     Dates: start: 20130808, end: 20130903
  2. RIBASPHERE [Suspect]
     Indication: CHRONIC HEPATITIS C
     Dosage: 3 BID ORAL
     Route: 048
     Dates: start: 20130808, end: 20130903
  3. PAXIL [Concomitant]
  4. OMEPRAZOLE [Concomitant]
  5. LEVOTHYROXINE [Concomitant]
  6. ALPRAZOLAM [Concomitant]

REACTIONS (3)
  - Rash generalised [None]
  - Oral mucosal blistering [None]
  - Psoriasis [None]
